FAERS Safety Report 14820823 (Version 1)
Quarter: 2018Q2

REPORT INFORMATION
  Report Type: Spontaneous
  Country: US (occurrence: US)
  Receive Date: 20180420
  Receipt Date: 20180420
  Transmission Date: 20180711
  Serious: No
  Sender: FDA-Public Use
  Company Number: None

PATIENT
  Age: 54 Year
  Sex: Female

DRUGS (1)
  1. TOBRAMYCIN NEB SOLUTION 300MG OTHER [Suspect]
     Active Substance: TOBRAMYCIN
     Indication: BRONCHIECTASIS
     Route: 055
     Dates: start: 20180227, end: 20180416

REACTIONS (2)
  - Headache [None]
  - Vision blurred [None]

NARRATIVE: CASE EVENT DATE: 20180416
